FAERS Safety Report 9381627 (Version 3)
Quarter: 2013Q3

REPORT INFORMATION
  Report Type: Spontaneous
  Country: FR (occurrence: FR)
  Receive Date: 20130703
  Receipt Date: 20130813
  Transmission Date: 20140515
  Serious: Yes (Hospitalization)
  Sender: FDA-Public Use
  Company Number: FR-MERCK-1306FRA011190

PATIENT
  Age: 48 Year
  Sex: Male

DRUGS (17)
  1. AERIUS [Suspect]
     Dosage: 5 MG, QD
     Route: 048
     Dates: start: 20120721, end: 20120727
  2. MIOREL [Suspect]
     Dosage: UNK
     Route: 048
     Dates: start: 20120628, end: 20120728
  3. ACETAMINOPHEN [Suspect]
     Dosage: 4 G, QD
     Route: 048
     Dates: start: 20120628, end: 20120713
  4. TRAMADOL HYDROCHLORIDE [Suspect]
     Dosage: 150 MG, BID
     Route: 048
     Dates: start: 20120711, end: 20120713
  5. INEXIUM [Suspect]
     Dosage: 20 MG, QD
     Route: 048
     Dates: start: 20120707, end: 20120713
  6. VOLTAREN [Suspect]
     Dosage: 1 DF, BID
     Route: 048
     Dates: start: 20120626, end: 20120713
  7. AUGMENTIN [Suspect]
     Dosage: 3 G, QD
     Route: 048
     Dates: start: 20120607, end: 20120713
  8. NEUROTIN (ACETYLCARNITINE HYDROCHLORIDE) [Suspect]
     Dosage: 500 MG, TID
     Route: 048
     Dates: start: 20120721, end: 20120727
  9. DOMPERIDONE [Suspect]
     Dosage: UNK
     Route: 048
     Dates: start: 20120726, end: 20120727
  10. KETAMINE HYDROCHLORIDE [Suspect]
     Dosage: UNK
     Route: 048
     Dates: start: 20120723, end: 20120727
  11. VERSATIS [Suspect]
     Dosage: UNK
     Route: 062
     Dates: start: 20120726, end: 20120727
  12. SOLUPRED [Suspect]
     Dosage: UNK
     Dates: start: 20120707, end: 20120713
  13. LOVENOX [Suspect]
     Dosage: 1 DF, QD
     Route: 058
     Dates: start: 20120713
  14. SKENAN [Suspect]
     Dosage: 20 MG, BID
     Route: 048
     Dates: start: 20120713, end: 20120727
  15. ACTISKENAN [Suspect]
     Dosage: 6 DF, QD
     Route: 048
     Dates: start: 20120713, end: 20120727
  16. LAROXYL [Suspect]
     Dosage: 5 DF, QD
     Route: 048
     Dates: start: 20120719, end: 20120727
  17. LYRICA [Suspect]
     Dosage: 5 MG, BID
     Route: 048
     Dates: start: 20120718, end: 20120719

REACTIONS (1)
  - Hepatocellular injury [Recovered/Resolved]
